FAERS Safety Report 18502523 (Version 1)
Quarter: 2020Q4

REPORT INFORMATION
  Report Type: Spontaneous
  Country: CA (occurrence: CA)
  Receive Date: 20201113
  Receipt Date: 20201113
  Transmission Date: 20210114
  Serious: Yes (Other)
  Sender: FDA-Public Use
  Company Number: CA-SAMSUNG BIOEPIS-SB-2020-02633

PATIENT
  Age: 56 Year
  Sex: Male

DRUGS (1)
  1. INFLIXIMAB [Suspect]
     Active Substance: INFLIXIMAB
     Indication: PSORIASIS
     Route: 042

REACTIONS (11)
  - Insomnia [Unknown]
  - Pain in jaw [Unknown]
  - Diarrhoea [Unknown]
  - Therapeutic response shortened [Unknown]
  - Abdominal pain [Unknown]
  - Blood cholesterol abnormal [Unknown]
  - Glaucoma [Unknown]
  - Osteopenia [Unknown]
  - Therapeutic product effect incomplete [Unknown]
  - Musculoskeletal pain [Unknown]
  - Weight increased [Unknown]
